FAERS Safety Report 11778038 (Version 1)
Quarter: 2015Q4

REPORT INFORMATION
  Report Type: Spontaneous
  Country: CA (occurrence: CA)
  Receive Date: 20151125
  Receipt Date: 20151125
  Transmission Date: 20160304
  Serious: Yes (Other)
  Sender: FDA-Public Use
  Company Number: CA-BAYER-2015-466509

PATIENT
  Age: 81 Year
  Sex: Female

DRUGS (1)
  1. ASPIRIN 81 MG QUICK CHEWS [Suspect]
     Active Substance: ASPIRIN

REACTIONS (1)
  - Ulcer [None]
